FAERS Safety Report 9745384 (Version 2)
Quarter: 2014Q2

REPORT INFORMATION
  Report Type: Spontaneous
  Country: US (occurrence: US)
  Receive Date: 20131211
  Receipt Date: 20140408
  Transmission Date: 20141212
  Serious: Yes (Death, Other)
  Sender: FDA-Public Use
  Company Number: PHHY2013US143717

PATIENT
  Age: 26 Year
  Sex: Female

DRUGS (3)
  1. DEFEROXAMINE [Suspect]
     Indication: IRON OVERLOAD
  2. ACETYLCYSTEINE [Suspect]
  3. IRON SUPPLEMENTS [Suspect]

REACTIONS (5)
  - Death [Fatal]
  - Coma [Unknown]
  - Shock [Unknown]
  - Brain herniation [Unknown]
  - Multi-organ failure [Unknown]
